FAERS Safety Report 5375375-X (Version None)
Quarter: 2007Q2

REPORT INFORMATION
  Report Type: 
  Country: None (occurrence: None)
  Receive Date: 20070629
  Receipt Date: 20070619
  Transmission Date: 20071010
  Serious: Yes (Other)
  Sender: FDA-Public Use
  Company Number: FR-PFIZER INC-2007050771

PATIENT
  Age: 79 Year
  Sex: Male

DRUGS (3)
  1. LYRICA [Suspect]
  2. PREDNISONE TAB [Concomitant]
  3. OMEPRAZOLE [Concomitant]

REACTIONS (2)
  - BLINDNESS [None]
  - RETINAL ARTERY OCCLUSION [None]
